FAERS Safety Report 5523424-8 (Version None)
Quarter: 2007Q4

REPORT INFORMATION
  Report Type: 
  Country: None (occurrence: None)
  Receive Date: 20071121
  Receipt Date: 20071113
  Transmission Date: 20080405
  Serious: Yes (Other)
  Sender: FDA-Public Use
  Company Number: GB-KINGPHARMUSA00001-K200701469

PATIENT

DRUGS (1)
  1. EPIPEN [Suspect]
     Dosage: .3 MG, SINGLE

REACTIONS (8)
  - ACCIDENTAL EXPOSURE [None]
  - INJECTION SITE COLDNESS [None]
  - INJECTION SITE DISCOLOURATION [None]
  - INJECTION SITE PAIN [None]
  - INJECTION SITE PALLOR [None]
  - JOINT STIFFNESS [None]
  - LABORATORY TEST ABNORMAL [None]
  - PARAESTHESIA [None]
